FAERS Safety Report 25721189 (Version 1)
Quarter: 2025Q3

REPORT INFORMATION
  Report Type: Spontaneous
  Country: US (occurrence: None)
  Receive Date: 20250822
  Receipt Date: 20250822
  Transmission Date: 20251021
  Serious: No
  Sender: FDA-CTU
  Company Number: None

PATIENT
  Age: 34 Year
  Sex: Male
  Weight: 103.5 kg

DRUGS (1)
  1. FLUPHENAZINE [Suspect]
     Active Substance: FLUPHENAZINE
     Indication: Schizophrenia

REACTIONS (6)
  - Tongue disorder [None]
  - Glossodynia [None]
  - Screaming [None]
  - Sedation [None]
  - Hyperacusis [None]
  - Drug ineffective [None]

NARRATIVE: CASE EVENT DATE: 20250822
